FAERS Safety Report 6508243-8 (Version None)
Quarter: 2009Q4

REPORT INFORMATION
  Report Type: 
  Country: None (occurrence: None)
  Receive Date: 20091221
  Receipt Date: 20081222
  Transmission Date: 20100525
  Serious: Yes (Other)
  Sender: FDA-Public Use
  Company Number: US-ASTRAZENECA-2008UW28583

PATIENT
  Age: 78 Year
  Sex: Female
  Weight: 61.2 kg

DRUGS (6)
  1. CRESTOR [Suspect]
     Indication: BLOOD CHOLESTEROL INCREASED
     Route: 048
  2. CRESTOR [Suspect]
     Route: 048
     Dates: end: 20081219
  3. PLAVIX [Concomitant]
  4. BENICAR [Concomitant]
  5. NEXIUM [Concomitant]
  6. AVANDAMET [Concomitant]
     Dosage: 4/1000

REACTIONS (10)
  - ABDOMINAL DISCOMFORT [None]
  - ABDOMINAL PAIN UPPER [None]
  - ASTHENIA [None]
  - DRY SKIN [None]
  - LIMB DISCOMFORT [None]
  - NAUSEA [None]
  - PAIN IN EXTREMITY [None]
  - PANCREATITIS ACUTE [None]
  - RETCHING [None]
  - VOMITING [None]
